FAERS Safety Report 4668628-1 (Version None)
Quarter: 2005Q2

REPORT INFORMATION
  Report Type: 
  Country: None (occurrence: None)
  Receive Date: 20050523
  Receipt Date: 20050511
  Transmission Date: 20051028
  Serious: Yes (Other)
  Sender: FDA-Public Use
  Company Number: DE-NOVOPROD-244082

PATIENT
  Age: 0 None
  Sex: Female
  Weight: 70 kg

DRUGS (9)
  1. ACTIVELLE [Suspect]
     Indication: ILL-DEFINED DISORDER
     Dates: start: 20001001, end: 20030901
  2. BISOPROLOL FUMARATE [Concomitant]
  3. AMLODIPINE [Concomitant]
  4. ASPIRIN [Concomitant]
  5. ZOLPIDEM TARTRATE [Concomitant]
  6. METAMIZOLE [Concomitant]
  7. TRAMADOL [Concomitant]
  8. CLOPIDOGREL BISULFATE [Concomitant]
  9. AMITRIPTYLINOXIDE [Concomitant]

REACTIONS (1)
  - FIBROCYSTIC BREAST DISEASE [None]
